FAERS Safety Report 8463320 (Version 4)
Quarter: 2013Q1

REPORT INFORMATION
  Report Type: Spontaneous
  Country: CA (occurrence: CA)
  Receive Date: 20120316
  Receipt Date: 20130318
  Transmission Date: 20140127
  Serious: Yes (Hospitalization, Other)
  Sender: FDA-Public Use
  Company Number: CA-JNJFOC-20120303634

PATIENT
  Age: 59 Year
  Sex: Female
  Weight: 52 kg

DRUGS (12)
  1. REMICADE [Suspect]
     Indication: CROHN^S DISEASE
     Route: 042
     Dates: start: 20120207
  2. REMICADE [Suspect]
     Indication: CROHN^S DISEASE
     Route: 042
     Dates: start: 20120131
  3. REMICADE [Suspect]
     Indication: CROHN^S DISEASE
     Route: 042
     Dates: start: 20120118
  4. REMICADE [Suspect]
     Indication: CROHN^S DISEASE
     Dosage: 3RD INFUSION
     Route: 042
     Dates: start: 20120306, end: 20120307
  5. REMICADE [Suspect]
     Indication: CROHN^S DISEASE
     Dosage: 3RD INFUSION
     Route: 042
     Dates: start: 20120229, end: 20120229
  6. SOLUCORTEF [Concomitant]
     Indication: PREMEDICATION
     Route: 042
  7. BENADRYL [Concomitant]
     Indication: PREMEDICATION
     Route: 042
  8. TYLENOL [Concomitant]
     Indication: PREMEDICATION
     Route: 048
  9. PANTOPRAZOLE [Concomitant]
     Indication: GASTROOESOPHAGEAL REFLUX DISEASE
     Route: 065
  10. HYDROCORTISONE [Concomitant]
     Indication: PREMEDICATION
     Route: 042
  11. BENADRYL [Concomitant]
     Indication: PREMEDICATION
     Route: 065
  12. ACETAMINOPHEN [Concomitant]
     Indication: PREMEDICATION
     Route: 065

REACTIONS (11)
  - Cyanosis [Unknown]
  - Swollen tongue [Not Recovered/Not Resolved]
  - Dyspnoea [Recovered/Resolved]
  - Infusion related reaction [Unknown]
  - Pyrexia [Recovered/Resolved]
  - Chills [Not Recovered/Not Resolved]
  - Infusion related reaction [Not Recovered/Not Resolved]
  - Malaise [Recovering/Resolving]
  - Nausea [Recovering/Resolving]
  - Vomiting [Unknown]
  - Body temperature increased [Unknown]
